FAERS Safety Report 15136035 (Version 1)
Quarter: 2018Q3

REPORT INFORMATION
  Report Type: Spontaneous
  Country: US (occurrence: US)
  Receive Date: 20180617
  Receipt Date: 20180617
  Transmission Date: 20181010
  Serious: Yes (Life-Threatening, Hospitalization, Disabling)
  Sender: FDA-Public Use
  Company Number: None

PATIENT
  Age: 68 Year
  Sex: Male
  Weight: 77.11 kg

DRUGS (4)
  1. FOLIC ACID. [Concomitant]
     Active Substance: FOLIC ACID
  2. VITAMIN B12 [Concomitant]
     Active Substance: CYANOCOBALAMIN
  3. LIDOCAINE INJECTION [Suspect]
     Active Substance: LIDOCAINE
  4. RESCRITION MEDICATION [Concomitant]

REACTIONS (4)
  - Rectal haemorrhage [None]
  - Cardiomyopathy [None]
  - Muscle injury [None]
  - Radiation injury [None]

NARRATIVE: CASE EVENT DATE: 20160129
